FAERS Safety Report 10872494 (Version 1)
Quarter: 2015Q1

REPORT INFORMATION
  Report Type: Spontaneous
  Country: DE (occurrence: DE)
  Receive Date: 20150227
  Receipt Date: 20150227
  Transmission Date: 20150721
  Serious: Yes (Disabling)
  Sender: FDA-Public Use
  Company Number: GXKR2015DE001144

PATIENT

DRUGS (1)
  1. OMEP [Suspect]
     Active Substance: OMEPRAZOLE
     Indication: GASTRITIS
     Route: 048

REACTIONS (4)
  - Pain [Not Recovered/Not Resolved]
  - Dependence [Not Recovered/Not Resolved]
  - Abdominal pain upper [Not Recovered/Not Resolved]
  - Rebound effect [Not Recovered/Not Resolved]
